FAERS Safety Report 21410789 (Version 1)
Quarter: 2022Q4

REPORT INFORMATION
  Report Type: Report from Study
  Country: HR (occurrence: HR)
  Receive Date: 20221005
  Receipt Date: 20221005
  Transmission Date: 20230113
  Serious: Yes (Other)
  Sender: FDA-Public Use
  Company Number: HR-NOVARTISPH-NVSC2022HR221080

PATIENT
  Sex: Female

DRUGS (3)
  1. COSENTYX [Suspect]
     Active Substance: SECUKINUMAB
     Indication: Spondyloarthropathy
     Dosage: UNK
     Route: 065
  2. COSENTYX [Suspect]
     Active Substance: SECUKINUMAB
     Indication: HLA-B*27 positive
  3. COSENTYX [Suspect]
     Active Substance: SECUKINUMAB
     Indication: Sacroiliitis

REACTIONS (2)
  - Colitis ulcerative [Not Recovered/Not Resolved]
  - Product use in unapproved indication [Unknown]
